FAERS Safety Report 7444344-8 (Version None)
Quarter: 2011Q2

REPORT INFORMATION
  Report Type: 
  Country: None (occurrence: None)
  Receive Date: 20110429
  Receipt Date: 20110415
  Transmission Date: 20111010
  Serious: Yes (Hospitalization)
  Sender: FDA-Public Use
  Company Number: HK-RANBAXY-2011RR-42933

PATIENT
  Age: 84 Year
  Sex: Male

DRUGS (3)
  1. AMPICILLIN SODIUM/SULBACTAM SODIUM [Concomitant]
     Indication: ESCHERICHIA URINARY TRACT INFECTION
     Dosage: 1.2 G, TID
     Route: 042
  2. LEVODOPA/BENSERAZIDE [Suspect]
     Dosage: UNK
  3. OLANZAPINE [Concomitant]
     Indication: EXTRAPYRAMIDAL DISORDER
     Dosage: 20 MG, UNK

REACTIONS (2)
  - DRUG WITHDRAWAL SYNDROME [None]
  - NEUROLEPTIC MALIGNANT SYNDROME [None]
